FAERS Safety Report 7361384-8 (Version None)
Quarter: 2011Q1

REPORT INFORMATION
  Report Type: 
  Country: None (occurrence: None)
  Receive Date: 20110309
  Receipt Date: 20110301
  Transmission Date: 20110831
  Serious: Yes (Hospitalization)
  Sender: FDA-Public Use
  Company Number: 1000018141

PATIENT
  Age: 80 Year
  Sex: Female

DRUGS (13)
  1. CENTRUM SILVER (CENTRUM SILVER) (TABLETS) (CENTRUM SILVER) [Concomitant]
  2. NORVASC (AMLODIPINE) (TABLETS) (AMLODIPINE) [Concomitant]
  3. LIDODERM (LIDOCAINE) (TRANSDERMAL) (LIDOCAINE) [Concomitant]
  4. ASPIRIN (ACETYLSALICYLIC ACID) (81 MILLIGRAM, TABLETS) (ACETYLSALICYLI [Concomitant]
  5. SAVELLA [Suspect]
     Indication: PAIN
     Dosage: 1 TABLET DAILY (1 IN 1 D), ORAL
     Route: 048
     Dates: start: 20100101
  6. FOSAMAX [Concomitant]
  7. LIPITOR (ATORVASTATIN CALCIUM) (TABLETS) (ATORVASTATIN CALCIUM) [Concomitant]
  8. AVAPRO (IRBESARTAN) (150 MILLIGRAM, TABLETS) (IRBESARTAN) [Concomitant]
  9. SYNTHROID (LEVOTHYROXINE SODIUM) (TABLETS) (LEVOTHYROXINE SODIUM) [Concomitant]
  10. TRAMADOL (TRAMADOL) (TABLETS) [Suspect]
     Indication: PAIN
     Dosage: 100 MG (50 MG, 2 IN 1 D), ORAL
     Route: 048
     Dates: start: 20100101
  11. POLYETHYLENE GLYCOL (POLYETHLENE GLYCOL) (POLYETHLENE GLYCOL) [Concomitant]
  12. GLYCERIN SUPPOSITORY (GLYCERIN) (SUPPOSITORY) (GLYCERIN) [Concomitant]
  13. MELATONIN (MELATONIN) (TABLETS) (MELATONIN) [Concomitant]

REACTIONS (7)
  - STEVENS-JOHNSON SYNDROME [None]
  - PURULENCE [None]
  - LOBAR PNEUMONIA [None]
  - EYE DISCHARGE [None]
  - CYANOSIS [None]
  - CEREBROVASCULAR ACCIDENT [None]
  - UNRESPONSIVE TO STIMULI [None]
